FAERS Safety Report 4303463-5 (Version None)
Quarter: 2004Q1

REPORT INFORMATION
  Report Type: 
  Country: None (occurrence: None)
  Receive Date: 20040223
  Receipt Date: 20040209
  Transmission Date: 20041129
  Serious: Yes (Death, Hospitalization)
  Sender: FDA-Public Use
  Company Number: 04-00047

PATIENT
  Age: 39 Year
  Sex: Male

DRUGS (1)
  1. KADIAN [Suspect]
     Dosage: ORAL
     Route: 048

REACTIONS (1)
  - HYPERAESTHESIA [None]
